FAERS Safety Report 22911575 (Version 7)
Quarter: 2023Q4

REPORT INFORMATION
  Report Type: Spontaneous
  Country: JP (occurrence: JP)
  Receive Date: 20230906
  Receipt Date: 20231218
  Transmission Date: 20240109
  Serious: Yes (Other)
  Sender: FDA-Public Use
  Company Number: JP-CHUGAI-2023031309AA

PATIENT
  Age: 29 Year
  Sex: Male
  Weight: 91.7 kg

DRUGS (1)
  1. HEMLIBRA [Suspect]
     Active Substance: EMICIZUMAB-KXWH
     Indication: Factor VIII deficiency
     Dosage: 300 MILLIGRAM, ONCE/2WEEKS?ADMINISTERED UNTIL 14/OCT/2023
     Route: 058
     Dates: start: 20190622, end: 20231014

REACTIONS (6)
  - Haemophilic pseudotumour [Not Recovered/Not Resolved]
  - Haemarthrosis [Unknown]
  - Resorption bone increased [Not Recovered/Not Resolved]
  - Haemarthrosis [Recovering/Resolving]
  - Synovitis [Not Recovered/Not Resolved]
  - Treatment noncompliance [Unknown]

NARRATIVE: CASE EVENT DATE: 20230528
